FAERS Safety Report 8327514 (Version 2)
Quarter: 2013Q2

REPORT INFORMATION
  Report Type: Spontaneous
  Country: US (occurrence: None)
  Receive Date: 20111228
  Receipt Date: 20130425
  Transmission Date: 20140414
  Serious: Yes (Death, Other)
  Sender: FDA-Public Use
  Company Number: AUR-APL-2011-06238

PATIENT
  Age: 77 Year
  Sex: Male

DRUGS (10)
  1. METFORMIN HYDROCHLORIDE [Suspect]
     Indication: PRODUCT USED FOR UNKNOWN INDICATION
     Dosage: 3 DOSAGE FORMS (1 DOSAGE FORMS, 3 IN 1 D)
  2. SUNITINIB MALATE [Suspect]
     Indication: HEPATIC CANCER
     Dosage: 37.5 MG (37.5 MG, 1 IN 1 D)
     Dates: start: 20111017, end: 20111113
  3. DOXORUBICIN HYDROCHLORIDE [Suspect]
     Indication: HEPATIC CANCER
  4. TAMSULOSIN HYDROCHLORIDE [Concomitant]
  5. LANSOPRAZOLE [Concomitant]
  6. VASTAREL [Concomitant]
  7. PULMICORT FLEXHALER [Concomitant]
  8. VOLTAREN [Concomitant]
  9. AMLODIPINE BESYLATE [Concomitant]
  10. LAMALINE (LAMALINE /00764901/) [Concomitant]

REACTIONS (4)
  - GENERAL PHYSICAL CONDITION ABNORMAL [None]
  - DECREASED APPETITE [None]
  - Hepatic cancer [None]
  - Neoplasm progression [None]
